FAERS Safety Report 9307297 (Version 1)
Quarter: 2013Q2

REPORT INFORMATION
  Report Type: Spontaneous
  Country: US (occurrence: US)
  Receive Date: 20130524
  Receipt Date: 20130524
  Transmission Date: 20140414
  Serious: Yes (Other)
  Sender: FDA-Public Use
  Company Number: US-ROCHE-1102767

PATIENT
  Age: 14 Year
  Sex: Female
  Weight: 85.35 kg

DRUGS (1)
  1. ACCUTANE [Suspect]
     Indication: ACNE
     Route: 048
     Dates: start: 19920510, end: 19920929

REACTIONS (9)
  - Colitis ulcerative [Unknown]
  - Colon cancer [Unknown]
  - Crohn^s disease [Unknown]
  - Inflammatory bowel disease [Unknown]
  - Intestinal obstruction [Unknown]
  - Irritable bowel syndrome [Unknown]
  - Dry skin [Unknown]
  - Lip exfoliation [Unknown]
  - Pain [Unknown]
